FAERS Safety Report 8484574-X (Version None)
Quarter: 2012Q3

REPORT INFORMATION
  Report Type: 
  Country: None (occurrence: None)
  Receive Date: 20120703
  Receipt Date: 20120515
  Transmission Date: 20120928
  Serious: Yes (Other)
  Sender: FDA-Public Use
  Company Number: US-TEVA-328314USA

PATIENT
  Age: 76 Year
  Sex: Female
  Weight: 88.984 kg

DRUGS (9)
  1. PREGABALIN [Concomitant]
     Dosage: 225 MILLIGRAM;
  2. GABAPENTIN [Concomitant]
     Dosage: 1800 MILLIGRAM; 2 TABS
     Route: 048
  3. TOPIRAMATE [Concomitant]
  4. NUVIGIL [Suspect]
     Indication: PAIN
     Dosage: 150 MILLIGRAM;
     Route: 048
     Dates: start: 20120310
  5. DULOXETINE HYDROCHLORIDE [Concomitant]
  6. VICODIN [Concomitant]
  7. IBUPROFEN [Concomitant]
  8. FENTANYL CITRATE [Concomitant]
  9. OMEPRAZOLE [Concomitant]

REACTIONS (2)
  - LIP PAIN [None]
  - ANGIOEDEMA [None]
